FAERS Safety Report 10611073 (Version 2)
Quarter: 2014Q4

REPORT INFORMATION
  Report Type: Spontaneous
  Country: US (occurrence: US)
  Receive Date: 20141126
  Receipt Date: 20141126
  Transmission Date: 20150529
  Serious: No
  Sender: FDA-Public Use
  Company Number: US-MALLINCKRODT-T201403673

PATIENT
  Age: 9 Year
  Sex: Female

DRUGS (2)
  1. GABLOFEN [Suspect]
     Active Substance: BACLOFEN
     Dosage: 125 MCG/DAY (2000 MCG/ML CONCENTRATION)
     Route: 037
  2. GABLOFEN [Suspect]
     Active Substance: BACLOFEN
     Indication: MUSCLE SPASTICITY
     Dosage: 150 MCG/DAY (500 MCG/ML CONCENTRATION)
     Route: 037

REACTIONS (4)
  - Implant site erosion [Unknown]
  - Irritability [Recovered/Resolved]
  - Drug withdrawal syndrome [Recovered/Resolved]
  - Treatment noncompliance [Unknown]

NARRATIVE: CASE EVENT DATE: 20140912
